FAERS Safety Report 4293793-8 (Version None)
Quarter: 2004Q1

REPORT INFORMATION
  Report Type: 
  Country: None (occurrence: None)
  Receive Date: 20040212
  Receipt Date: 20031114
  Transmission Date: 20041129
  Serious: Yes (Life-Threatening, Hospitalization, Disabling)
  Sender: FDA-Public Use
  Company Number: WAES 0311USA01866

PATIENT
  Age: 60 Year
  Sex: Male

DRUGS (6)
  1. LOTENSIN [Concomitant]
  2. COLACE [Concomitant]
  3. NEXIUM [Concomitant]
  4. TRICOR [Concomitant]
  5. INSULIN [Concomitant]
  6. VIOXX [Suspect]
     Indication: ARTHRITIS
     Route: 048

REACTIONS (8)
  - CHRONIC OBSTRUCTIVE AIRWAYS DISEASE [None]
  - CHRONIC OBSTRUCTIVE AIRWAYS DISEASE EXACERBATED [None]
  - DIABETIC KETOACIDOSIS [None]
  - HYPERCHLORAEMIA [None]
  - MYOCARDIAL INFARCTION [None]
  - RENAL FAILURE [None]
  - SPUTUM DISCOLOURED [None]
  - THERAPEUTIC AGENT TOXICITY [None]
